FAERS Safety Report 16471670 (Version 3)
Quarter: 2019Q3

REPORT INFORMATION
  Report Type: Spontaneous
  Country: KR (occurrence: KR)
  Receive Date: 20190624
  Receipt Date: 20190731
  Transmission Date: 20191004
  Serious: Yes (Hospitalization)
  Sender: FDA-Public Use
  Company Number: KR-009507513-1906KOR007617

PATIENT
  Sex: Female

DRUGS (9)
  1. DENOGAN [Concomitant]
     Active Substance: PROPACETAMOL HYDROCHLORIDE
     Dosage: 1G/1BTL; QUANTITY 1, DAYS 1
     Dates: start: 20190604, end: 20190604
  2. SODIUM CHLORIDE. [Concomitant]
     Active Substance: SODIUM CHLORIDE
     Dosage: 50 ML/BAG; QUANTITY: 1, DAYS: 1
     Dates: start: 20190719, end: 20190719
  3. KEYTRUDA [Suspect]
     Active Substance: PEMBROLIZUMAB
     Dosage: QUANTITY 2, DAYS 1
     Dates: start: 20190628, end: 20190628
  4. ZITHROMAX [Concomitant]
     Active Substance: AZITHROMYCIN DIHYDRATE
     Dosage: QUANTITY 1, DAYS 3
     Dates: start: 20190603, end: 20190605
  5. SODIUM CHLORIDE. [Concomitant]
     Active Substance: SODIUM CHLORIDE
     Dosage: 0.45G/50 ML BAG; QUANTITY 1 DAY 1
     Dates: start: 20190604, end: 20190604
  6. KEYTRUDA [Suspect]
     Active Substance: PEMBROLIZUMAB
     Indication: CHOLANGIOCARCINOMA
     Dosage: 200 MILLIGRAM; QUANTITY 2, DAYS 1
     Dates: start: 20190604, end: 20190604
  7. SODIUM CHLORIDE. [Concomitant]
     Active Substance: SODIUM CHLORIDE
     Dosage: 2.25G/250 ML; QUANTITY 1 DAYS 3
     Dates: start: 20190604, end: 20190605
  8. SODIUM CHLORIDE. [Concomitant]
     Active Substance: SODIUM CHLORIDE
     Dosage: 0.45G/50ML/BAG; QUANTITY: 1, DAYS:1
     Dates: start: 20190628, end: 20190628
  9. KEYTRUDA [Suspect]
     Active Substance: PEMBROLIZUMAB
     Dosage: QUANTITY: 2, DAYS: 1
     Dates: start: 20190719, end: 20190719

REACTIONS (2)
  - Product use in unapproved indication [Unknown]
  - Adverse event [Unknown]

NARRATIVE: CASE EVENT DATE: 201906
